FAERS Safety Report 7329388-9 (Version None)
Quarter: 2011Q1

REPORT INFORMATION
  Report Type: 
  Country: None (occurrence: None)
  Receive Date: 20110228
  Receipt Date: 20110228
  Transmission Date: 20110831
  Serious: Yes (Hospitalization)
  Sender: FDA-Public Use
  Company Number: None

PATIENT
  Age: 65 Year
  Sex: Female
  Weight: 77.1 kg

DRUGS (8)
  1. MULTI-VITAMIN [Concomitant]
  2. SIMVASTATIN [Concomitant]
  3. CALCIUM [Concomitant]
  4. TYLENOL-500 [Concomitant]
  5. ARIMIDEX [Concomitant]
  6. INTERFERON [Suspect]
     Indication: MALIGNANT MELANOMA
     Dosage: 15 MILLION, 3X WEEKLY SQ
     Dates: start: 20110113, end: 20110217
  7. PROCHLORPERAZINE [Concomitant]
  8. PRILOSEC [Concomitant]

REACTIONS (16)
  - HYPOXIA [None]
  - APPENDICITIS [None]
  - COUGH [None]
  - LOSS OF CONSCIOUSNESS [None]
  - ABDOMINAL PAIN [None]
  - DIZZINESS [None]
  - ASTHENIA [None]
  - LYMPHOPENIA [None]
  - RENAL FAILURE ACUTE [None]
  - CONFUSIONAL STATE [None]
  - NAUSEA [None]
  - DECREASED APPETITE [None]
  - UPPER-AIRWAY COUGH SYNDROME [None]
  - VOMITING [None]
  - TACHYCARDIA [None]
  - SEPSIS [None]
